FAERS Safety Report 12667448 (Version 1)
Quarter: 2016Q3

REPORT INFORMATION
  Report Type: Spontaneous
  Country: IN (occurrence: IN)
  Receive Date: 20160819
  Receipt Date: 20160819
  Transmission Date: 20161109
  Serious: Yes (Hospitalization)
  Sender: FDA-Public Use
  Company Number: IN-MYLANLABS-2016M1034368

PATIENT

DRUGS (1)
  1. KETAMINE [Suspect]
     Active Substance: KETAMINE
     Indication: PRODUCT USED FOR UNKNOWN INDICATION
     Dosage: INCREASED DOSE FROM 1 ML (50 MG) TO 3-4 ML (150-200 MG) IN 4 YEARS
     Route: 030

REACTIONS (19)
  - Derealisation [Unknown]
  - Pollakiuria [Unknown]
  - Communication disorder [Recovered/Resolved]
  - Withdrawal syndrome [Unknown]
  - Somatic hallucination [None]
  - Time perception altered [Unknown]
  - Coordination abnormal [Unknown]
  - Disturbance in attention [Unknown]
  - Social avoidant behaviour [Unknown]
  - Intentional product misuse [Unknown]
  - Abdominal pain lower [Unknown]
  - Hallucination, visual [Unknown]
  - Psychiatric symptom [Unknown]
  - Somatic hallucination [Unknown]
  - Drug abuse [Unknown]
  - Drug dependence [Unknown]
  - Drug tolerance [Unknown]
  - Depressed mood [Unknown]
  - Dysuria [Unknown]
